FAERS Safety Report 13296112 (Version 1)
Quarter: 2017Q1

REPORT INFORMATION
  Report Type: Report from Study
  Country: None (occurrence: US)
  Receive Date: 20170304
  Receipt Date: 20170304
  Transmission Date: 20170428
  Serious: Yes (Other)
  Sender: FDA-Public Use
  Company Number: US-ABBVIE-16K-163-1793156-00

PATIENT
  Sex: Female

DRUGS (1)
  1. HUMIRA [Suspect]
     Active Substance: ADALIMUMAB
     Indication: CROHN^S DISEASE
     Route: 058

REACTIONS (6)
  - Ileal stenosis [Unknown]
  - Pseudopolyposis [Unknown]
  - Colon dysplasia [Unknown]
  - Lymphoid hyperplasia of appendix [Unknown]
  - Haematochezia [Unknown]
  - Gastrointestinal inflammation [Unknown]
